FAERS Safety Report 7748522-X (Version None)
Quarter: 2011Q3

REPORT INFORMATION
  Report Type: 
  Country: None (occurrence: None)
  Receive Date: 20110914
  Receipt Date: 20110823
  Transmission Date: 20111222
  Serious: Yes (Hospitalization)
  Sender: FDA-Public Use
  Company Number: US-BIOGENIDEC-2011BI024971

PATIENT
  Age: 36 Year
  Sex: Female

DRUGS (3)
  1. TYSABRI [Suspect]
     Route: 042
     Dates: start: 20080512, end: 20090216
  2. TYSABRI [Suspect]
     Indication: MULTIPLE SCLEROSIS
     Route: 042
     Dates: start: 20110630
  3. TYSABRI [Suspect]
     Route: 042
     Dates: start: 20100315, end: 20101020

REACTIONS (7)
  - ANXIETY [None]
  - URINARY TRACT INFECTION [None]
  - INSOMNIA [None]
  - DEPRESSION [None]
  - MENTAL IMPAIRMENT [None]
  - HALLUCINATION [None]
  - RASH [None]
